FAERS Safety Report 9398331 (Version 1)
Quarter: 2013Q3

REPORT INFORMATION
  Report Type: Spontaneous
  Country: SE (occurrence: SE)
  Receive Date: 20130712
  Receipt Date: 20130712
  Transmission Date: 20140515
  Serious: Yes (Life-Threatening)
  Sender: FDA-Public Use
  Company Number: SE-GLAXOSMITHKLINE-B0906175A

PATIENT
  Age: 67 Year
  Sex: Female

DRUGS (6)
  1. VOTRIENT [Suspect]
     Indication: LEIOMYOSARCOMA METASTATIC
     Dosage: 800MG PER DAY
     Route: 048
     Dates: start: 20130129, end: 20130203
  2. OMEPRAZOLE [Concomitant]
     Route: 065
  3. BISOPROLOL [Concomitant]
     Route: 065
  4. TRAMADOL [Concomitant]
     Route: 065
  5. DIGOXIN [Concomitant]
     Route: 065
  6. PREDNISOLON [Concomitant]
     Route: 065

REACTIONS (4)
  - Malaise [Recovered/Resolved]
  - Arrhythmia [Recovered/Resolved]
  - Transaminases increased [Recovered/Resolved]
  - Hepatotoxicity [Recovered/Resolved]
